FAERS Safety Report 5762725-5 (Version None)
Quarter: 2008Q2

REPORT INFORMATION
  Report Type: 
  Country: None (occurrence: None)
  Receive Date: 20080609
  Receipt Date: 20080602
  Transmission Date: 20081010
  Serious: Yes (Other)
  Sender: FDA-Public Use
  Company Number: JP-ASTRAZENECA-2008AP03872

PATIENT
  Age: 47 Year
  Sex: Male

DRUGS (16)
  1. CRESTOR [Suspect]
     Indication: HYPERCHOLESTEROLAEMIA
     Route: 048
     Dates: start: 20070516
  2. GOODMIN [Suspect]
     Route: 048
     Dates: start: 20080325
  3. PAXIL [Suspect]
     Route: 048
     Dates: start: 20080325
  4. LEXOTAN [Suspect]
     Route: 048
     Dates: start: 20080325
  5. CARVEDILOL [Concomitant]
     Indication: HYPERTENSION
     Route: 048
     Dates: start: 20060419, end: 20071106
  6. MICARDIS [Concomitant]
     Indication: HYPERTENSION
     Route: 048
     Dates: start: 20060509, end: 20060718
  7. MICARDIS [Concomitant]
     Route: 048
     Dates: start: 20060719
  8. EPADEL S [Concomitant]
     Indication: HYPERLIPIDAEMIA
     Route: 048
     Dates: start: 20060509
  9. ATELEC [Concomitant]
     Indication: HYPERTENSION
     Route: 048
     Dates: start: 20060523, end: 20060613
  10. ATELEC [Concomitant]
     Route: 048
     Dates: start: 20060614
  11. VOGLIBOSE OD [Concomitant]
     Indication: DIABETES MELLITUS
     Route: 048
     Dates: start: 20060801
  12. DEPAKENE [Concomitant]
     Indication: EPILEPSY
     Route: 048
     Dates: end: 20070731
  13. DEPAKENE [Concomitant]
     Route: 048
     Dates: start: 20070801, end: 20070911
  14. DEPAKENE [Concomitant]
     Route: 048
     Dates: start: 20070912, end: 20070914
  15. DEPAKENE [Concomitant]
     Route: 048
     Dates: start: 20070915, end: 20080508
  16. DEPAKENE [Concomitant]
     Route: 048
     Dates: start: 20080509

REACTIONS (2)
  - EPILEPSY [None]
  - LOSS OF CONSCIOUSNESS [None]
